FAERS Safety Report 8212429-4 (Version None)
Quarter: 2012Q1

REPORT INFORMATION
  Report Type: 
  Country: None (occurrence: None)
  Receive Date: 20120315
  Receipt Date: 20120306
  Transmission Date: 20120608
  Serious: Yes (Hospitalization)
  Sender: FDA-Public Use
  Company Number: US-BAYER-2011-114223

PATIENT
  Age: 44 Year
  Sex: Female
  Weight: 99.592 kg

DRUGS (11)
  1. YASMIN [Suspect]
     Dosage: UNK
     Dates: start: 20070501, end: 20080701
  2. PREVACID [Concomitant]
     Indication: GASTROOESOPHAGEAL REFLUX DISEASE
     Dosage: 30 MG, QD
     Route: 048
  3. ZYRTEC [Concomitant]
     Indication: MULTIPLE ALLERGIES
     Dosage: 10 MG, QD
     Route: 048
  4. REMERON [Concomitant]
     Indication: SLEEP DISORDER
     Dosage: 15 MG, HS
     Route: 048
  5. CYMBALTA [Concomitant]
     Indication: DEPRESSION
     Dosage: 60 MG, QD
     Route: 048
  6. DROSPIRENONE AND ETHINYL ESTRADIOL [Suspect]
     Dosage: UNK
     Dates: start: 20080701, end: 20091001
  7. TOPAMAX [Concomitant]
     Indication: MIGRAINE
     Dosage: 25 MG, BID
     Route: 048
  8. IMITREX [Concomitant]
     Indication: MIGRAINE
     Dosage: 50 MG, PRN
     Route: 048
  9. NAPROXEN (ALEVE) [Concomitant]
     Dosage: UNK UNK, PRN
     Route: 048
  10. ADVAIR DISKUS 100/50 [Concomitant]
     Dosage: 250MCG - 50MCG
  11. RANITIDINE [Concomitant]
     Indication: DYSPEPSIA
     Dosage: 300 MG, QD
     Route: 048

REACTIONS (8)
  - INJURY [None]
  - PAIN [None]
  - GENERAL PHYSICAL HEALTH DETERIORATION [None]
  - CHEST PAIN [None]
  - PULMONARY EMBOLISM [None]
  - ANXIETY [None]
  - DYSPNOEA [None]
  - EMOTIONAL DISTRESS [None]
